FAERS Safety Report 10846283 (Version 13)
Quarter: 2016Q3

REPORT INFORMATION
  Report Type: Report from Study
  Country: CA (occurrence: CA)
  Receive Date: 20150220
  Receipt Date: 20160728
  Transmission Date: 20161109
  Serious: Yes (Hospitalization, Other)
  Sender: FDA-Public Use
  Company Number: PHHY2014CA165433

PATIENT
  Age: 77 Year
  Sex: Male

DRUGS (8)
  1. SANDOSTATIN LAR DEPOT [Suspect]
     Active Substance: OCTREOTIDE ACETATE
     Indication: NEUROENDOCRINE CARCINOMA
     Dosage: 40 MG, QMO
     Route: 030
     Dates: start: 20140207
  2. SANDOSTATIN LAR DEPOT [Suspect]
     Active Substance: OCTREOTIDE ACETATE
     Dosage: 50 MG, QMO
     Route: 030
  3. SANDOSTATIN LAR DEPOT [Suspect]
     Active Substance: OCTREOTIDE ACETATE
     Dosage: 60 MG, QMO (EVERY 4 WEEKS)
     Route: 030
     Dates: end: 20160629
  4. SANDOSTATIN LAR DEPOT [Suspect]
     Active Substance: OCTREOTIDE ACETATE
     Dosage: 50 MG, QMO
     Route: 030
  5. SANDOSTATIN LAR DEPOT [Suspect]
     Active Substance: OCTREOTIDE ACETATE
     Dosage: 50 MG, QMO (EVERY 4 WEEKS)
     Route: 030
  6. SANDOSTATIN LAR DEPOT [Suspect]
     Active Substance: OCTREOTIDE ACETATE
     Dosage: 40 MG, QMO
     Route: 030
     Dates: start: 20150205
  7. LOPERAMIDE [Concomitant]
     Active Substance: LOPERAMIDE
     Indication: PRODUCT USED FOR UNKNOWN INDICATION
     Dosage: UNK UNK, PRN
     Route: 065
  8. SANDOSTATIN LAR DEPOT [Suspect]
     Active Substance: OCTREOTIDE ACETATE
     Dosage: 30 MG, QMO
     Route: 030

REACTIONS (27)
  - Procedural pain [Not Recovered/Not Resolved]
  - Blood pressure systolic increased [Unknown]
  - Dyspnoea [Unknown]
  - Visual impairment [Unknown]
  - Appetite disorder [Unknown]
  - Diplopia [Recovered/Resolved]
  - Fatigue [Not Recovered/Not Resolved]
  - Diarrhoea [Not Recovered/Not Resolved]
  - Drug dispensing error [Unknown]
  - Abdominal pain [Recovering/Resolving]
  - Asthenia [Unknown]
  - Eye contusion [Unknown]
  - Body temperature decreased [Unknown]
  - Needle issue [Unknown]
  - Abdominal pain upper [Not Recovered/Not Resolved]
  - Dizziness postural [Recovering/Resolving]
  - Dizziness [Recovered/Resolved]
  - Flushing [Not Recovered/Not Resolved]
  - Face oedema [Unknown]
  - Oedema peripheral [Unknown]
  - Tricuspid valve disease [Unknown]
  - Abdominal discomfort [Unknown]
  - Swelling [Unknown]
  - Nausea [Unknown]
  - Heart rate irregular [Unknown]
  - Incorrect dose administered [Unknown]
  - Diverticulitis [Recovering/Resolving]

NARRATIVE: CASE EVENT DATE: 20141215
